APPROVED DRUG PRODUCT: GLIMEPIRIDE
Active Ingredient: GLIMEPIRIDE
Strength: 1MG
Dosage Form/Route: TABLET;ORAL
Application: A076995 | Product #001
Applicant: ACTAVIS LABORATORIES FL INC
Approved: Apr 27, 2010 | RLD: No | RS: No | Type: DISCN